FAERS Safety Report 12467918 (Version 1)
Quarter: 2016Q2

REPORT INFORMATION
  Report Type: Spontaneous
  Country: US (occurrence: US)
  Receive Date: 20160615
  Receipt Date: 20160615
  Transmission Date: 20160815
  Serious: No
  Sender: FDA-Public Use
  Company Number: US-PFIZER INC-2016278504

PATIENT
  Sex: Female

DRUGS (1)
  1. LYRICA [Suspect]
     Active Substance: PREGABALIN
     Dosage: 150 MG, UNK

REACTIONS (6)
  - Intentional product misuse [Unknown]
  - Tremor [Unknown]
  - Nausea [Unknown]
  - Pain [Unknown]
  - Neuropathy peripheral [Unknown]
  - Withdrawal syndrome [Unknown]
